FAERS Safety Report 9813802 (Version 1)
Quarter: 2014Q1

REPORT INFORMATION
  Report Type: Spontaneous
  Country: US (occurrence: US)
  Receive Date: 20140113
  Receipt Date: 20140113
  Transmission Date: 20141002
  Serious: No
  Sender: FDA-Public Use
  Company Number: US-B.I. PHARMACEUTICALS,INC./RIDGEFIELD-2014-BI-00496BP

PATIENT
  Sex: Male

DRUGS (2)
  1. SPIRIVA [Suspect]
     Dosage: 18 MCG
     Route: 055
  2. SPIRIVA [Suspect]
     Dosage: 18 MCG
     Route: 048

REACTIONS (2)
  - Heart rate increased [Unknown]
  - Incorrect route of drug administration [Recovered/Resolved]
